FAERS Safety Report 15724818 (Version 2)
Quarter: 2019Q1

REPORT INFORMATION
  Report Type: Report from Study
  Country: US (occurrence: US)
  Receive Date: 20181214
  Receipt Date: 20190124
  Transmission Date: 20190417
  Serious: Yes (Life-Threatening, Hospitalization, Other)
  Sender: FDA-Public Use
  Company Number: US-SHIRE-US201848055

PATIENT
  Age: 54 Year
  Sex: Male

DRUGS (2)
  1. GATTEX [Suspect]
     Active Substance: TEDUGLUTIDE\WATER
     Indication: INTESTINAL FISTULA
     Dosage: 4.515 UNK
     Route: 058
     Dates: start: 20180802
  2. GATTEX [Suspect]
     Active Substance: TEDUGLUTIDE\WATER
     Indication: SHORT-BOWEL SYNDROME
     Dosage: 5.52 MG, 1X/DAY:QD
     Route: 058
     Dates: start: 20180802

REACTIONS (13)
  - Fluid retention [Unknown]
  - Hypoaesthesia [Not Recovered/Not Resolved]
  - Dyspnoea [Unknown]
  - Fatigue [Unknown]
  - Abdominal distension [Unknown]
  - Fistula [Unknown]
  - Hospitalisation [Unknown]
  - Condition aggravated [Unknown]
  - Sepsis [Unknown]
  - Pain in extremity [Unknown]
  - Deafness [Unknown]
  - Urinary tract infection [Unknown]
  - Skin tightness [Unknown]

NARRATIVE: CASE EVENT DATE: 20181221
